FAERS Safety Report 11142773 (Version 5)
Quarter: 2015Q3

REPORT INFORMATION
  Report Type: Spontaneous
  Country: US (occurrence: US)
  Receive Date: 20150527
  Receipt Date: 20150724
  Transmission Date: 20151125
  Serious: Yes (Hospitalization)
  Sender: FDA-Public Use
  Company Number: US-BRISTOL-MYERS SQUIBB COMPANY-BMS-2015-032554

PATIENT
  Age: 66 Year
  Sex: Female

DRUGS (1)
  1. SPRYCEL [Suspect]
     Active Substance: DASATINIB
     Indication: CHRONIC MYELOID LEUKAEMIA
     Dosage: 100 MG, QD
     Route: 048
     Dates: start: 201504

REACTIONS (7)
  - Vision blurred [Unknown]
  - Pneumonia [Unknown]
  - Heart rate decreased [Unknown]
  - Drug dose omission [Unknown]
  - Blood pressure increased [Unknown]
  - Eye pain [Unknown]
  - Overdose [Unknown]

NARRATIVE: CASE EVENT DATE: 20150630
